FAERS Safety Report 5589206-6 (Version None)
Quarter: 2008Q1

REPORT INFORMATION
  Report Type: 
  Country: None (occurrence: None)
  Receive Date: 20080109
  Receipt Date: 20080107
  Transmission Date: 20080703
  Serious: Yes (Disabling)
  Sender: FDA-Public Use
  Company Number: 2008SP000346

PATIENT
  Age: 21 Year
  Sex: Female

DRUGS (2)
  1. PEG-INTRON (PEGINTERFERON ALFA-2B) (PEGINTERFERON ALAF-2B) [Suspect]
     Indication: HEPATITIS C
     Dosage: 60 MCG;QW;SC; 50 MCG;QW;SC
     Route: 058
     Dates: start: 20070801
  2. REBETOL [Suspect]
     Indication: HEPATITIS C
     Dosage: 600 MG;QD;PO
     Route: 048
     Dates: start: 20070801

REACTIONS (3)
  - APALLIC SYNDROME [None]
  - CARDIO-RESPIRATORY ARREST [None]
  - HYPOTHERMIA [None]
